FAERS Safety Report 13814724 (Version 1)
Quarter: 2017Q3

REPORT INFORMATION
  Report Type: Spontaneous
  Country: FR (occurrence: FR)
  Receive Date: 20170731
  Receipt Date: 20170731
  Transmission Date: 20171127
  Serious: Yes (Other)
  Sender: FDA-Public Use
  Company Number: FR-BEH-2017082390

PATIENT
  Age: 5 Year
  Sex: Male
  Weight: 19 kg

DRUGS (4)
  1. PRIVIGEN [Suspect]
     Active Substance: HUMAN IMMUNOGLOBULIN G
     Indication: ENCEPHALITIS
     Dosage: UNK
     Route: 042
     Dates: start: 20170618, end: 20170622
  2. LAROXYL [Concomitant]
     Active Substance: AMITRIPTYLINE
     Indication: ALLODYNIA
     Dosage: 5 ML, BID
     Route: 048
     Dates: start: 20170619
  3. CLAFORAN [Concomitant]
     Active Substance: CEFOTAXIME SODIUM
     Dosage: UNK
     Route: 065
  4. PRIVIGEN [Suspect]
     Active Substance: HUMAN IMMUNOGLOBULIN G
     Dosage: 8 UNK, UNK
     Route: 042
     Dates: start: 20170622

REACTIONS (1)
  - Infusion site extravasation [Recovered/Resolved]

NARRATIVE: CASE EVENT DATE: 20170622
